FAERS Safety Report 13409542 (Version 4)
Quarter: 2022Q2

REPORT INFORMATION
  Report Type: Spontaneous
  Country: US (occurrence: US)
  Receive Date: 20170406
  Receipt Date: 20220622
  Transmission Date: 20220721
  Serious: Yes (Other)
  Sender: FDA-Public Use
  Company Number: US-JNJFOC-20170127306

PATIENT
  Age: 13 Year
  Sex: Male

DRUGS (12)
  1. RISPERDAL [Suspect]
     Active Substance: RISPERIDONE
     Indication: Bipolar disorder
     Route: 048
     Dates: start: 200901
  2. RISPERDAL [Suspect]
     Active Substance: RISPERIDONE
     Indication: Attention deficit hyperactivity disorder
     Route: 048
     Dates: start: 20090506, end: 20091003
  3. RISPERDAL [Suspect]
     Active Substance: RISPERIDONE
     Route: 048
     Dates: start: 20090511
  4. RISPERDAL [Suspect]
     Active Substance: RISPERIDONE
     Route: 048
     Dates: end: 20120719
  5. RISPERDAL [Suspect]
     Active Substance: RISPERIDONE
     Dosage: AT BED TIME
     Route: 048
     Dates: start: 20121027
  6. RISPERIDONE [Suspect]
     Active Substance: RISPERIDONE
     Indication: Bipolar disorder
     Route: 048
     Dates: start: 20081229, end: 20090302
  7. RISPERIDONE [Suspect]
     Active Substance: RISPERIDONE
     Indication: Attention deficit hyperactivity disorder
     Route: 048
     Dates: start: 20090406
  8. RISPERIDONE [Suspect]
     Active Substance: RISPERIDONE
     Dosage: IN VARYING DOSES OF 1 MG, 2 MG
     Route: 048
     Dates: start: 20091115, end: 20121022
  9. RISPERIDONE [Suspect]
     Active Substance: RISPERIDONE
     Route: 048
     Dates: start: 20121027, end: 20121231
  10. RISPERIDONE [Suspect]
     Active Substance: RISPERIDONE
     Route: 048
     Dates: start: 20130213, end: 20131212
  11. RISPERIDONE [Suspect]
     Active Substance: RISPERIDONE
     Dosage: QHS (AT BED TIME)
     Route: 048
     Dates: start: 20131217
  12. DEPAKOTE [Concomitant]
     Active Substance: DIVALPROEX SODIUM
     Indication: Mental disorder
     Route: 065

REACTIONS (4)
  - Tardive dyskinesia [Recovering/Resolving]
  - Obesity [Unknown]
  - Emotional distress [Unknown]
  - Gynaecomastia [Unknown]

NARRATIVE: CASE EVENT DATE: 20090321
